FAERS Safety Report 9103415 (Version 1)
Quarter: 2013Q1

REPORT INFORMATION
  Report Type: Spontaneous
  Country: US (occurrence: US)
  Receive Date: 20130219
  Receipt Date: 20130219
  Transmission Date: 20140127
  Serious: No
  Sender: FDA-Public Use
  Company Number: US-PFIZER INC-2013059556

PATIENT
  Age: 64 Year
  Sex: Male
  Weight: 105 kg

DRUGS (6)
  1. FLAGYL [Suspect]
     Indication: DIVERTICULITIS
     Dosage: 500 MG, 3X/DAY
     Dates: start: 201212
  2. OMEPRAZOLE [Concomitant]
     Indication: GASTROOESOPHAGEAL REFLUX DISEASE
     Dosage: 30 MG, 2X/DAY
  3. METOPROLOL [Concomitant]
     Indication: BLOOD PRESSURE ABNORMAL
     Dosage: 400 MG, 2X/DAY
  4. SIMVASTATIN [Concomitant]
     Dosage: 20 MG, 1X/DAY
  5. CIPROFLOXACIN [Concomitant]
     Indication: DIVERTICULITIS
     Dosage: 500 MG, 2X/DAY
     Dates: start: 201212
  6. NIFEDIPINE [Concomitant]
     Dosage: 120 MG, 2X/DAY

REACTIONS (2)
  - Weight decreased [Recovering/Resolving]
  - Gastric disorder [Unknown]
